FAERS Safety Report 12871118 (Version 4)
Quarter: 2016Q4

REPORT INFORMATION
  Report Type: Spontaneous
  Country: GR (occurrence: GR)
  Receive Date: 20161021
  Receipt Date: 20161101
  Transmission Date: 20170207
  Serious: Yes (Life-Threatening, Other)
  Sender: FDA-Public Use
  Company Number: GR-PFIZER INC-2016478872

PATIENT
  Age: 56 Year
  Sex: Female

DRUGS (10)
  1. SPIRONOLACTONE. [Suspect]
     Active Substance: SPIRONOLACTONE
  2. ATENOLOL. [Suspect]
     Active Substance: ATENOLOL
     Dosage: UNK
  3. ISOSORBIDE DINITRATE. [Suspect]
     Active Substance: ISOSORBIDE DINITRATE
  4. ISOSORBIDE DINITRATE. [Concomitant]
     Active Substance: ISOSORBIDE DINITRATE
  5. DIGOXIN. [Suspect]
     Active Substance: DIGOXIN
  6. VALSARTAN. [Suspect]
     Active Substance: VALSARTAN
  7. DIGOXIN. [Concomitant]
     Active Substance: DIGOXIN
  8. ATENOLOL. [Suspect]
     Active Substance: ATENOLOL
     Route: 065
  9. VALSARTAN. [Suspect]
     Active Substance: VALSARTAN
     Route: 065
  10. MODURETIC 5-50 [Suspect]
     Active Substance: AMILORIDE HYDROCHLORIDE\HYDROCHLOROTHIAZIDE

REACTIONS (1)
  - Hyperkalaemia [Unknown]
